FAERS Safety Report 7153915-8 (Version None)
Quarter: 2010Q4

REPORT INFORMATION
  Report Type: 
  Country: None (occurrence: None)
  Receive Date: 20101213
  Receipt Date: 20101130
  Transmission Date: 20110411
  Serious: Yes (Other)
  Sender: FDA-Public Use
  Company Number: PHHY2010US81843

PATIENT

DRUGS (2)
  1. ZOMETA [Suspect]
  2. HERCEPTIN [Concomitant]

REACTIONS (3)
  - FEMUR FRACTURE [None]
  - HIP ARTHROPLASTY [None]
  - METASTASES TO SPINE [None]
